FAERS Safety Report 6087567-5 (Version None)
Quarter: 2009Q1

REPORT INFORMATION
  Report Type: 
  Country: None (occurrence: None)
  Receive Date: 20090219
  Receipt Date: 20081216
  Transmission Date: 20090719
  Serious: No
  Sender: FDA-Public Use
  Company Number: WAES 0812USA03344

PATIENT
  Age: 58 Year
  Sex: Male

DRUGS (3)
  1. JANUVIA [Suspect]
     Indication: TYPE 2 DIABETES MELLITUS
     Dosage: 25 MG/PO; 50 MG/DAILY/PO
     Route: 048
     Dates: start: 20081125, end: 20081214
  2. JANUVIA [Suspect]
     Indication: TYPE 2 DIABETES MELLITUS
     Dosage: 25 MG/PO; 50 MG/DAILY/PO
     Route: 048
     Dates: start: 20081214
  3. VITAMINS [Concomitant]

REACTIONS (1)
  - FEELING JITTERY [None]
